FAERS Safety Report 9820567 (Version 1)
Quarter: 2013Q4

REPORT INFORMATION
  Report Type: Spontaneous
  Country: US (occurrence: None)
  Receive Date: 20131028
  Receipt Date: 20131028
  Transmission Date: 20140711
  Serious: Yes (Other)
  Sender: FDA-Public Use
  Company Number: 2013US001710

PATIENT
  Age: 56 Year
  Sex: Male
  Weight: 77 kg

DRUGS (5)
  1. ICLUSIG [Suspect]
     Indication: CHRONIC MYELOID LEUKAEMIA
     Route: 048
  2. OXYCODONE [Concomitant]
  3. VALIUM (DIAZEPAM) [Concomitant]
  4. ADVIL (IBUPROFEN) [Concomitant]
  5. STOOL SOFTENER (DOCUSATE SODIUM) [Concomitant]

REACTIONS (3)
  - Infection [None]
  - White blood cell count abnormal [None]
  - Drug ineffective [None]
